FAERS Safety Report 5932878-4 (Version None)
Quarter: 2008Q4

REPORT INFORMATION
  Report Type: 
  Country: None (occurrence: None)
  Receive Date: 20081028
  Receipt Date: 20081022
  Transmission Date: 20090506
  Serious: Yes (Hospitalization, Other)
  Sender: FDA-Public Use
  Company Number: US-ELI_LILLY_AND_COMPANY-US200810005370

PATIENT
  Age: 70 Year
  Sex: Female

DRUGS (4)
  1. HUMULIN 70/30 [Suspect]
  2. ACTOS [Concomitant]
     Indication: DIABETES MELLITUS
     Dosage: 30 MG, UNK
  3. NORVASC [Concomitant]
     Dosage: 5 MG, UNK
  4. VESDIL [Concomitant]
     Indication: HYPERTENSION
     Dosage: 20 MG, UNK

REACTIONS (6)
  - BLOOD GLUCOSE DECREASED [None]
  - BLOOD GLUCOSE INCREASED [None]
  - CARDIAC DISORDER [None]
  - COLD SWEAT [None]
  - MALAISE [None]
  - PULMONARY THROMBOSIS [None]
